FAERS Safety Report 6945399-7 (Version None)
Quarter: 2010Q3

REPORT INFORMATION
  Report Type: 
  Country: None (occurrence: None)
  Receive Date: 20100827
  Receipt Date: 20100817
  Transmission Date: 20110219
  Serious: Yes (Death)
  Sender: FDA-Public Use
  Company Number: US-ROCHE-717683

PATIENT
  Sex: Female

DRUGS (1)
  1. BONIVA [Suspect]
     Dosage: FORM: PILL, TAKEN FOR SEVERAL YEARS
     Route: 065

REACTIONS (1)
  - CARDIAC FAILURE [None]
